FAERS Safety Report 7297354-8 (Version None)
Quarter: 2011Q1

REPORT INFORMATION
  Report Type: 
  Country: None (occurrence: None)
  Receive Date: 20110216
  Receipt Date: 20110211
  Transmission Date: 20110831
  Serious: Yes (Hospitalization)
  Sender: FDA-Public Use
  Company Number: US-B.I. PHARMACEUTICALS,INC./RIDGEFIELD-2011-BP-02666BP

PATIENT
  Age: 66 Year
  Sex: Male

DRUGS (7)
  1. ACCUPRIL [Concomitant]
     Indication: HYPERTENSION
  2. ACETAMINOPHEN [Concomitant]
  3. PRADAXA [Suspect]
     Indication: ATRIAL FIBRILLATION
     Dosage: 300 MG
     Route: 048
     Dates: start: 20110119, end: 20110203
  4. PREVACID [Concomitant]
     Indication: GASTROOESOPHAGEAL REFLUX DISEASE
  5. VYTORIN [Concomitant]
     Indication: BLOOD CHOLESTEROL INCREASED
  6. VERAPAMIL [Concomitant]
     Indication: CARDIAC DISORDER
  7. AMIODARONE [Concomitant]
     Indication: ATRIAL FIBRILLATION

REACTIONS (2)
  - WHITE BLOOD CELL COUNT DECREASED [None]
  - VENTRICULAR TACHYCARDIA [None]
